FAERS Safety Report 17151791 (Version 4)
Quarter: 2020Q2

REPORT INFORMATION
  Report Type: Report from Study
  Country: US (occurrence: US)
  Receive Date: 20191213
  Receipt Date: 20200410
  Transmission Date: 20200713
  Serious: No
  Sender: FDA-Public Use
  Company Number: NVSC2019US068941

PATIENT
  Age: 91 Year
  Sex: Female

DRUGS (1)
  1. ENTRESTO [Suspect]
     Active Substance: SACUBITRIL\VALSARTAN
     Indication: CARDIAC FAILURE
     Dosage: 50 MG(24MG SACUBITRIL/ 26MG VALSARTAN), BID
     Route: 048
     Dates: start: 20191126

REACTIONS (4)
  - Heart rate increased [Not Recovered/Not Resolved]
  - Adverse drug reaction [Unknown]
  - Cough [Recovered/Resolved]
  - Cough [Recovering/Resolving]

NARRATIVE: CASE EVENT DATE: 2019
